FAERS Safety Report 4693225-1 (Version None)
Quarter: 2005Q2

REPORT INFORMATION
  Report Type: 
  Country: None (occurrence: None)
  Receive Date: 20050617
  Receipt Date: 20050607
  Transmission Date: 20051028
  Serious: Yes (Disabling, Other)
  Sender: FDA-Public Use
  Company Number: US-GLAXOSMITHKLINE-A0561780A

PATIENT
  Age: 32 Year
  Sex: Female
  Weight: 58.2 kg

DRUGS (4)
  1. TUMS E-X TABLETS, ASSORTED BERRIES [Suspect]
     Indication: ANTACID THERAPY
     Route: 048
     Dates: start: 20020101
  2. CARBATROL [Concomitant]
  3. NEURONTIN [Concomitant]
     Dates: start: 20021101
  4. PRILOSEC [Concomitant]
     Indication: ANTACID THERAPY
     Route: 048
     Dates: start: 20040101

REACTIONS (2)
  - DEAFNESS [None]
  - DYSGEUSIA [None]
